FAERS Safety Report 13936699 (Version 2)
Quarter: 2017Q4

REPORT INFORMATION
  Report Type: Spontaneous
  Country: US (occurrence: US)
  Receive Date: 20170905
  Receipt Date: 20171010
  Transmission Date: 20180320
  Serious: No
  Sender: FDA-Public Use
  Company Number: US-PFIZER INC-2017382506

PATIENT
  Age: 51 Year
  Sex: Female
  Weight: 83.6 kg

DRUGS (26)
  1. LYRICA [Suspect]
     Active Substance: PREGABALIN
     Indication: PAIN IN EXTREMITY
     Dosage: 300 MG, 1 CAPSULE TWICE A DAY
     Route: 048
     Dates: start: 2015
  2. BACLOFEN. [Concomitant]
     Active Substance: BACLOFEN
     Indication: BACK PAIN
  3. DULOXETINE. [Concomitant]
     Active Substance: DULOXETINE
     Indication: BACK PAIN
  4. NEURONTIN [Concomitant]
     Active Substance: GABAPENTIN
     Indication: BACK PAIN
     Dosage: 1200 MG, 3X/DAY
  5. GABAPENTIN. [Concomitant]
     Active Substance: GABAPENTIN
     Indication: BACK PAIN
     Dosage: 1200 MG, 3X/DAY (2 TABLETS 3 TIMES A DAY)
  6. PREDNISONE. [Concomitant]
     Active Substance: PREDNISONE
     Indication: ADRENAL INSUFFICIENCY
     Dosage: 5 MG, 1X/DAY (1 TABLET IN THE MORNING)
  7. VOLTAREN [Concomitant]
     Active Substance: DICLOFENAC SODIUM
     Indication: BACK PAIN
     Dosage: 50 MG, 3X/DAY
  8. MORPHINE [Concomitant]
     Active Substance: MORPHINE
     Indication: BACK PAIN
     Dosage: 15 MG, 3X/DAY
  9. BACLOFEN. [Concomitant]
     Active Substance: BACLOFEN
     Indication: MUSCLE SPASMS
     Dosage: 20 MG, 3X/DAY (2 TABLETS 3 TIMES A DAV)
  10. PRAVASTATIN. [Concomitant]
     Active Substance: PRAVASTATIN
     Indication: BLOOD CHOLESTEROL INCREASED
     Dosage: 80 MG, 1X/DAY  (1 TABLET IN THE MORNING)
  11. CLONIDINE. [Concomitant]
     Active Substance: CLONIDINE
     Indication: BLOOD PRESSURE MEASUREMENT
     Dosage: UNK UNK, WEEKLY (1 PATCH PER WEEK) (0.1 MG/DAY)
  12. LYRICA [Suspect]
     Active Substance: PREGABALIN
     Indication: RADICULOPATHY
     Dosage: 300 MG, 2X/DAY
     Route: 048
  13. ALENDRONATE [Concomitant]
     Active Substance: ALENDRONATE SODIUM
     Indication: BONE DISORDER
     Dosage: 70 MG, WEEKLY (ONE TIME A WEEK
  14. AMLODIPINE [Concomitant]
     Active Substance: AMLODIPINE BESYLATE
     Indication: HYPERTENSION
     Dosage: 10 MG, 1X/DAY (1 TABLET IN THE MORNING)
  15. NASONEX [Concomitant]
     Active Substance: MOMETASONE FUROATE
     Indication: NASAL CONGESTION
     Dosage: 2 DF, 1X/DAY (2 SPRAYS IN EACH NOSTRIL ONCE A DAY)
  16. FLUTICASONE. [Concomitant]
     Active Substance: FLUTICASONE
     Dosage: UNK
  17. OXYCODONE IR [Concomitant]
     Active Substance: OXYCODONE
     Indication: BACK PAIN
     Dosage: 30 MG, UNK
  18. OXYCODONE IR [Concomitant]
     Active Substance: OXYCODONE
     Dosage: 15 MG, UNK (1 TABLET EVERY 6 TO 8 HOURS)
  19. HYDROCHLOROTHIAZIDE. [Concomitant]
     Active Substance: HYDROCHLOROTHIAZIDE
     Dosage: UNK
  20. LOSARTAN. [Concomitant]
     Active Substance: LOSARTAN
     Indication: HYPERTENSION
     Dosage: 100 MG, 1X/DAY (1 TABLET IN THE MORNINQ)
  21. OMEPRAZOLE. [Concomitant]
     Active Substance: OMEPRAZOLE
     Indication: GASTROOESOPHAGEAL REFLUX DISEASE
     Dosage: 20 MG, 1X/DAY (1 TABLET IN THE MORNING)
  22. LYRICA [Suspect]
     Active Substance: PREGABALIN
     Indication: LUMBOSACRAL RADICULOPATHY
  23. DICLOFENAC SODIUM. [Concomitant]
     Active Substance: DICLOFENAC SODIUM
     Indication: BACK PAIN
     Dosage: 50 MG, 3X/DAY
  24. DULOXETINE. [Concomitant]
     Active Substance: DULOXETINE
     Indication: DEPRESSION
     Dosage: 120 MG, 1X/DAY (2 CAPSULES IN THE MORNING)
  25. POTASSIUM CHLORIDE. [Concomitant]
     Active Substance: POTASSIUM CHLORIDE
     Indication: MUSCLE SPASMS
     Dosage: 10 MEQ, AS NEEDED
  26. CALCIUM [Concomitant]
     Active Substance: CALCIUM
     Dosage: UNK

REACTIONS (3)
  - Memory impairment [Unknown]
  - Visual impairment [Not Recovered/Not Resolved]
  - Animal scratch [Unknown]

NARRATIVE: CASE EVENT DATE: 2015
